FAERS Safety Report 6304682-9 (Version None)
Quarter: 2009Q3

REPORT INFORMATION
  Report Type: 
  Country: None (occurrence: None)
  Receive Date: 20090806
  Receipt Date: 20090722
  Transmission Date: 20100115
  Serious: Yes (Other)
  Sender: FDA-Public Use
  Company Number: PHHY2009BR30704

PATIENT
  Age: 67 Year
  Sex: Female

DRUGS (2)
  1. VISUDYNE [Suspect]
     Dosage: 15 MG ONCE IV
     Route: 042
     Dates: start: 20050801, end: 20050801
  2. VITALUX PLUS [Suspect]
     Dates: start: 20060101

REACTIONS (1)
  - THYROID DISORDER [None]
